FAERS Safety Report 4611556-8 (Version None)
Quarter: 2005Q2

REPORT INFORMATION
  Report Type: 
  Country: None (occurrence: None)
  Receive Date: 20050311
  Receipt Date: 20041230
  Transmission Date: 20051028
  Serious: No
  Sender: FDA-Public Use
  Company Number: 2004-BP-06985BP

PATIENT
  Age: 75 Year
  Sex: Female
  Weight: 64 kg

DRUGS (8)
  1. SPIRIVA [Suspect]
     Indication: PULMONARY FIBROSIS
     Dosage: 18 MCG (18 MCG, 18 IN 1 D), IH
     Route: 055
     Dates: start: 20040712, end: 20040901
  2. SPIRIVA [Suspect]
     Indication: SCAR
     Dosage: 18 MCG (18 MCG, 18 IN 1 D), IH
     Route: 055
     Dates: start: 20040712, end: 20040901
  3. SPIRIVA [Suspect]
     Indication: SLEEP APNOEA SYNDROME
     Dosage: 18 MCG (18 MCG, 18 IN 1 D), IH
     Route: 055
     Dates: start: 20040712, end: 20040901
  4. SINUS RINSE [Concomitant]
  5. SYNTHROID [Concomitant]
  6. XANAX [Concomitant]
  7. TYLENOL (PARACETAMOL) [Concomitant]
  8. PULMICORT [Concomitant]

REACTIONS (1)
  - DRUG INEFFECTIVE [None]
